FAERS Safety Report 12705551 (Version 1)
Quarter: 2016Q3

REPORT INFORMATION
  Report Type: Spontaneous
  Country: US (occurrence: US)
  Receive Date: 20160901
  Receipt Date: 20160901
  Transmission Date: 20161109
  Serious: No
  Sender: FDA-Public Use
  Company Number: US-ASTRAZENECA-2016SE88786

PATIENT
  Age: 22332 Day
  Sex: Female
  Weight: 54.4 kg

DRUGS (3)
  1. LEVAMIR [Concomitant]
  2. LYRICA [Concomitant]
     Active Substance: PREGABALIN
  3. BYDUREON [Suspect]
     Active Substance: EXENATIDE
     Indication: DIABETES MELLITUS
     Route: 058
     Dates: start: 201605

REACTIONS (2)
  - Product quality issue [Unknown]
  - Headache [Unknown]

NARRATIVE: CASE EVENT DATE: 20160816
